FAERS Safety Report 14145643 (Version 1)
Quarter: 2017Q4

REPORT INFORMATION
  Report Type: Spontaneous
  Country: US (occurrence: US)
  Receive Date: 20171031
  Receipt Date: 20171031
  Transmission Date: 20180321
  Serious: No
  Sender: FDA-Public Use
  Company Number: US-BAYER-2017-205492

PATIENT
  Age: 52 Year
  Sex: Female

DRUGS (1)
  1. CLIMARA PRO [Suspect]
     Active Substance: ESTRADIOL\LEVONORGESTREL
     Dosage: UNK
     Route: 062

REACTIONS (7)
  - Wrong technique in device usage process [None]
  - Feeling abnormal [Not Recovered/Not Resolved]
  - Product physical issue [None]
  - Menstrual disorder [Not Recovered/Not Resolved]
  - Device breakage [None]
  - Cough [Not Recovered/Not Resolved]
  - Product adhesion issue [None]
